FAERS Safety Report 13484788 (Version 2)
Quarter: 2017Q2

REPORT INFORMATION
  Report Type: Spontaneous
  Country: US (occurrence: US)
  Receive Date: 20170426
  Receipt Date: 20170428
  Transmission Date: 20170830
  Serious: Yes (Other)
  Sender: FDA-Public Use
  Company Number: US-PFIZER INC-2017179095

PATIENT
  Age: 74 Year
  Sex: Female

DRUGS (1)
  1. IBRANCE [Suspect]
     Active Substance: PALBOCICLIB
     Dosage: 100 MG, CYCLIC (1 CAP PO QD FOR 21 DAYS ON THEN 7 DAYS OFF)
     Route: 048
     Dates: start: 20160831, end: 20170421

REACTIONS (1)
  - Neutropenia [Unknown]
